FAERS Safety Report 5572417-3 (Version None)
Quarter: 2007Q4

REPORT INFORMATION
  Report Type: 
  Country: None (occurrence: None)
  Receive Date: 20071219
  Receipt Date: 20071204
  Transmission Date: 20080405
  Serious: Yes (Hospitalization)
  Sender: FDA-Public Use
  Company Number: 230002L07JPN

PATIENT
  Age: 24 Year
  Sex: Female

DRUGS (1)
  1. INTERFERON BETA (INTERFERON BETA) [Suspect]
     Indication: MYELITIS

REACTIONS (9)
  - CARDIOLIPIN ANTIBODY POSITIVE [None]
  - CONFUSIONAL STATE [None]
  - DEMYELINATION [None]
  - HEADACHE [None]
  - HICCUPS [None]
  - PAPILLOEDEMA [None]
  - PLEOCYTOSIS [None]
  - VISUAL ACUITY REDUCED [None]
  - VOMITING [None]
